FAERS Safety Report 7906069-1 (Version None)
Quarter: 2011Q4

REPORT INFORMATION
  Report Type: 
  Country: None (occurrence: None)
  Receive Date: 20111110
  Receipt Date: 20111110
  Transmission Date: 20120403
  Serious: Yes (Other)
  Sender: FDA-Public Use
  Company Number: None

PATIENT
  Age: 9 Month
  Sex: Male
  Weight: 8.6182 kg

DRUGS (1)
  1. HYLANDS TEETHING TABLETS [Suspect]
     Indication: TEETHING
     Dosage: 2 TABLETS
     Route: 048
     Dates: start: 20111109, end: 20111109

REACTIONS (4)
  - RASH ERYTHEMATOUS [None]
  - AGITATION [None]
  - RASH PAPULAR [None]
  - IRRITABILITY [None]
